FAERS Safety Report 13006346 (Version 3)
Quarter: 2017Q1

REPORT INFORMATION
  Report Type: Spontaneous
  Country: US (occurrence: US)
  Receive Date: 20161207
  Receipt Date: 20170201
  Transmission Date: 20170428
  Serious: No
  Sender: FDA-Public Use
  Company Number: US-GLAXOSMITHKLINE-US2016GSK180389

PATIENT
  Age: 79 Year
  Sex: Male

DRUGS (1)
  1. TANZEUM [Suspect]
     Active Substance: ALBIGLUTIDE
     Indication: TYPE 2 DIABETES MELLITUS
     Dosage: 50 MG, WE
     Route: 042
     Dates: start: 20161013

REACTIONS (6)
  - Diarrhoea [Unknown]
  - Wrong technique in product usage process [Unknown]
  - Device use error [Unknown]
  - Product quality issue [Unknown]
  - Abdominal pain upper [Unknown]
  - Hypoacusis [Unknown]

NARRATIVE: CASE EVENT DATE: 20161202
